FAERS Safety Report 6491969-2 (Version None)
Quarter: 2009Q4

REPORT INFORMATION
  Report Type: 
  Country: None (occurrence: None)
  Receive Date: 20091125
  Receipt Date: 20090917
  Transmission Date: 20100525
  Serious: Yes (Other)
  Sender: FDA-Public Use
  Company Number: 2009BH014237

PATIENT
  Age: 76 Year
  Sex: Female

DRUGS (1)
  1. DIANEAL [Suspect]
     Indication: PERITONEAL DIALYSIS
     Dosage: ; UNK ; IP
     Route: 033
     Dates: start: 20090301, end: 20090816

REACTIONS (1)
  - PERITONITIS [None]
